FAERS Safety Report 23743246 (Version 1)
Quarter: 2024Q2

REPORT INFORMATION
  Report Type: Spontaneous
  Country: US (occurrence: None)
  Receive Date: 20240415
  Receipt Date: 20240415
  Transmission Date: 20240716
  Serious: Yes (Other)
  Sender: FDA-Public Use
  Company Number: None

PATIENT
  Age: 76 Year
  Sex: Female

DRUGS (1)
  1. LENALIDOMIDE [Suspect]
     Active Substance: LENALIDOMIDE
     Indication: Plasma cell myeloma
     Dosage: 15MG DAILY BY MOUTH?
     Route: 048
     Dates: start: 20230324

REACTIONS (4)
  - Gait inability [None]
  - Confusional state [None]
  - Speech disorder [None]
  - Hallucination, visual [None]

NARRATIVE: CASE EVENT DATE: 20240324
